FAERS Safety Report 23146283 (Version 1)
Quarter: 2023Q4

REPORT INFORMATION
  Report Type: Report from Study
  Country: US (occurrence: US)
  Receive Date: 20231104
  Receipt Date: 20231104
  Transmission Date: 20240110
  Serious: No
  Sender: FDA-Public Use
  Company Number: US-002147023-NVSC2023US234726

PATIENT
  Sex: Male
  Weight: 122.47 kg

DRUGS (1)
  1. COSENTYX [Suspect]
     Active Substance: SECUKINUMAB
     Indication: Psoriasis
     Dosage: UNK
     Route: 065

REACTIONS (7)
  - Rash [Unknown]
  - Erythema [Unknown]
  - Psoriasis [Unknown]
  - Intertrigo [Unknown]
  - Drug eruption [Unknown]
  - Fungal infection [Unknown]
  - Skin weeping [Unknown]
